FAERS Safety Report 9282462 (Version 2)
Quarter: 2013Q2

REPORT INFORMATION
  Report Type: Spontaneous
  Country: US (occurrence: US)
  Receive Date: 20130510
  Receipt Date: 20130524
  Transmission Date: 20140414
  Serious: Yes (Other)
  Sender: FDA-Public Use
  Company Number: US-PFIZER INC-2013143251

PATIENT
  Age: 72 Year
  Sex: Female
  Weight: 132 kg

DRUGS (12)
  1. LYRICA [Suspect]
     Indication: FIBROMYALGIA
     Dosage: 75 MG, 2X/DAY
  2. LYRICA [Suspect]
     Indication: NEUROPATHY PERIPHERAL
  3. CLONAZEPAM [Concomitant]
     Dosage: 0.5 MG, 2X/DAY
     Route: 048
  4. VENTOLIN HFA [Concomitant]
     Dosage: 90 UG, ACTUAT AEROSOL SOLN 2 PUFF(S) INHALATION Q6H PRN
  5. HYDROCODONE-ACETAMINOPHEN [Concomitant]
     Dosage: 10/660 MG, TID PRN
     Route: 048
  6. LISINOPRIL-HYDROCHLOROTHIAZIDE [Concomitant]
     Dosage: 10/12.5 MG, 1X/DAY (QAM)
     Route: 048
  7. LEVOTHYROXINE SODIUM [Concomitant]
     Dosage: 25 UG, 1X/DAY (DAILY)
     Route: 048
  8. FUROSEMIDE [Concomitant]
     Dosage: 20 MG, 1X/DAY (QAM)
     Route: 048
  9. AMITRIPTYLINE HCL [Concomitant]
     Dosage: 25 MG, 3X/DAY
     Route: 048
  10. BUPROPION HCL [Concomitant]
     Dosage: 300 MG, 1X/DAY (DAILY)
     Route: 048
  11. ALLOPURINOL [Concomitant]
     Dosage: 100 MG, 1X/DAY (DAILY)
     Route: 048
  12. CYANOCOBALAMIN [Concomitant]
     Dosage: 1000 UG/ML, QMTH

REACTIONS (4)
  - Fibromyalgia [Unknown]
  - Wheelchair user [Unknown]
  - Obesity [Unknown]
  - Malaise [Unknown]
